FAERS Safety Report 17184517 (Version 2)
Quarter: 2019Q4

REPORT INFORMATION
  Report Type: Spontaneous
  Country: US (occurrence: US)
  Receive Date: 20191220
  Receipt Date: 20191226
  Transmission Date: 20200122
  Serious: No
  Sender: FDA-Public Use
  Company Number: US-PFIZER INC-2019546535

PATIENT
  Age: 44 Year
  Sex: Male
  Weight: 72.57 kg

DRUGS (3)
  1. LYRICA [Suspect]
     Active Substance: PREGABALIN
     Indication: NERVE INJURY
     Dosage: 150 MG, 2X/DAY, (75MG TWO CAPSULES TWICE A DAY BY MOUTH)
     Route: 048
  2. LYRICA [Suspect]
     Active Substance: PREGABALIN
     Indication: NEURALGIA
  3. OXYCODONE [Concomitant]
     Active Substance: OXYCODONE
     Indication: NERVE INJURY
     Dosage: 60 MG, UNK[TAKES 2 30MG OXYCODONE PILLS EACH TIME ]

REACTIONS (1)
  - Pain in extremity [Unknown]
